FAERS Safety Report 4407100-0 (Version None)
Quarter: 2004Q3

REPORT INFORMATION
  Report Type: 
  Country: None (occurrence: None)
  Receive Date: 20040726
  Receipt Date: 20040713
  Transmission Date: 20050211
  Serious: Yes (Hospitalization)
  Sender: FDA-Public Use
  Company Number: FR-BRISTOL-MYERS SQUIBB COMPANY-12645180

PATIENT
  Age: 36 Year
  Sex: Female

DRUGS (2)
  1. DAIVONEX CREAM [Suspect]
     Indication: PSORIASIS
     Route: 061
  2. DAIVONEX OINTMENT [Suspect]
     Indication: PSORIASIS
     Route: 061

REACTIONS (4)
  - ECZEMA [None]
  - GENERALISED ERYTHEMA [None]
  - PSORIASIS [None]
  - WOUND SECRETION [None]
